FAERS Safety Report 12625466 (Version 1)
Quarter: 2016Q3

REPORT INFORMATION
  Report Type: Spontaneous
  Country: AT (occurrence: AT)
  Receive Date: 20160805
  Receipt Date: 20160805
  Transmission Date: 20161109
  Serious: Yes (Hospitalization)
  Sender: FDA-Public Use
  Company Number: AT-AMGEN-AUTSP2016099267

PATIENT
  Sex: Male
  Weight: 83 kg

DRUGS (8)
  1. LIPCOR [Concomitant]
     Active Substance: FENOFIBRATE
     Dosage: 200 MG, UNK
  2. EUCREAS [Concomitant]
     Active Substance: METFORMIN HYDROCHLORIDE\VILDAGLIPTIN
     Dosage: (50/1000) UNK
  3. THROMBO ASS [Concomitant]
     Active Substance: ASPIRIN
     Dosage: 100 MG, UNK
  4. ATORVASTATIN [Concomitant]
     Active Substance: ATORVASTATIN
     Dosage: 40 MG, UNK
  5. REPATHA [Suspect]
     Active Substance: EVOLOCUMAB
     Indication: PRODUCT USED FOR UNKNOWN INDICATION
     Dosage: 140 MG, UNK
     Route: 065
     Dates: start: 201510
  6. OMEGA 3 [Concomitant]
     Active Substance: OMEGA-3 FATTY ACIDS
     Dosage: 3 DF, BID
  7. MENCORD [Concomitant]
     Dosage: 10 MG, UNK
  8. FOLSAN [Concomitant]
     Active Substance: FOLIC ACID
     Dosage: 5 MG (4 PIECES), UNK

REACTIONS (6)
  - General physical health deterioration [Unknown]
  - Chills [Unknown]
  - Arthralgia [Unknown]
  - Arthropathy [Unknown]
  - Pyrexia [Unknown]
  - Fatigue [Unknown]

NARRATIVE: CASE EVENT DATE: 201607
